FAERS Safety Report 4791503-9 (Version None)
Quarter: 2005Q4

REPORT INFORMATION
  Report Type: 
  Country: None (occurrence: None)
  Receive Date: 20051007
  Receipt Date: 20041115
  Transmission Date: 20060501
  Serious: No
  Sender: FDA-Public Use
  Company Number: US-BRISTOL-MYERS SQUIBB COMPANY-12765723

PATIENT
  Age: 70 Year
  Sex: Female
  Weight: 134 kg

DRUGS (10)
  1. AVAPRO [Suspect]
     Indication: HYPERTENSION
     Dosage: BEGAN AVAPRO 150MG DAILY IN LATE JUL-2004,THEN INCREASED TO 300MG DAILY
     Dates: start: 20040701
  2. SINGULAIR [Concomitant]
  3. ADVAIR DISKUS 100/50 [Concomitant]
  4. HYDROCHLOROTHIAZIDE [Concomitant]
  5. VITAMIN B-12 [Concomitant]
  6. JOINT ADVANTAGE [Concomitant]
  7. THIAMINE HCL [Concomitant]
  8. FLAXSEED OIL [Concomitant]
  9. NEXIUM [Concomitant]
     Dosage: WAS ON 20MG IN JUN-04 THEN STOPPED.RESTARTED 20MG IN AUG-04, INCREASED TO 40MG ON 12-NOV-04
  10. VENTOLIN [Concomitant]

REACTIONS (1)
  - GASTROOESOPHAGEAL REFLUX DISEASE [None]
